FAERS Safety Report 16585754 (Version 1)
Quarter: 2019Q3

REPORT INFORMATION
  Report Type: Spontaneous
  Country: US (occurrence: US)
  Receive Date: 20190717
  Receipt Date: 20190717
  Transmission Date: 20191004
  Serious: Yes (Other)
  Sender: FDA-Public Use
  Company Number: US-FOUNDATIONCONSUMERHC-2019-US-004426

PATIENT
  Age: 18 Year
  Sex: Female
  Weight: 81.65 kg

DRUGS (3)
  1. LAMICTAL [Concomitant]
     Active Substance: LAMOTRIGINE
  2. PLAN B ONE-STEP [Suspect]
     Active Substance: LEVONORGESTREL
     Indication: POST COITAL CONTRACEPTION
     Dosage: 1.5 MG X 2 DOSES
     Route: 048
     Dates: start: 20190215, end: 20190218
  3. LUVOX [Concomitant]
     Active Substance: FLUVOXAMINE MALEATE

REACTIONS (8)
  - Acne [Unknown]
  - Dysmenorrhoea [Unknown]
  - Menstruation delayed [Unknown]
  - Pregnancy after post coital contraception [Unknown]
  - Drug ineffective [Unknown]
  - Abdominal discomfort [Unknown]
  - Breast tenderness [Unknown]
  - Intentional product misuse [Recovered/Resolved]

NARRATIVE: CASE EVENT DATE: 20190215
